FAERS Safety Report 5492655-8 (Version None)
Quarter: 2007Q4

REPORT INFORMATION
  Report Type: 
  Country: None (occurrence: None)
  Receive Date: 20071022
  Receipt Date: 20071010
  Transmission Date: 20080405
  Serious: Yes (Hospitalization, Disabling, Other)
  Sender: FDA-Public Use
  Company Number: GB-PFIZER INC-2007085287

PATIENT
  Age: 68 Year
  Sex: Male
  Weight: 90 kg

DRUGS (15)
  1. AMLODIPINE [Suspect]
  2. AVANDIA [Suspect]
     Indication: TYPE 2 DIABETES MELLITUS
     Route: 048
  3. AMITRIPTYLINE HCL [Concomitant]
     Dosage: DAILY DOSE:25MG
  4. ACETYLSALICYLIC ACID SRT [Concomitant]
     Dosage: DAILY DOSE:75MG
  5. BISOPROLOL FUMARATE [Concomitant]
     Dosage: DAILY DOSE:7.5MG
  6. CANDESARTAN CILEXETIL [Concomitant]
     Dosage: DAILY DOSE:32MG
  7. CLOPIDOGREL [Concomitant]
     Dosage: DAILY DOSE:75MG
  8. FLUOXETINE [Concomitant]
     Dosage: DAILY DOSE:20MG
  9. FRUSEMIDE [Concomitant]
     Dosage: DAILY DOSE:20MG
  10. ISOSORBIDE MONONITRATE [Concomitant]
     Dosage: DAILY DOSE:20MG
  11. METFORMIN HCL [Concomitant]
     Dosage: DAILY DOSE:20MG
  12. NAPROXEN [Concomitant]
  13. OMEPRAZOLE [Concomitant]
     Dosage: DAILY DOSE:10MG
  14. SIMVASTATIN [Concomitant]
  15. ZOPICLONE [Concomitant]

REACTIONS (12)
  - ANGINA PECTORIS [None]
  - BRAIN NATRIURETIC PEPTIDE INCREASED [None]
  - CARDIAC FAILURE [None]
  - CORONARY ARTERY DISEASE [None]
  - DYSPNOEA [None]
  - DYSPNOEA EXERTIONAL [None]
  - FLUID RETENTION [None]
  - HYPERHIDROSIS [None]
  - NECK PAIN [None]
  - OEDEMA PERIPHERAL [None]
  - PAIN [None]
  - PAIN IN EXTREMITY [None]
